FAERS Safety Report 7371365-6 (Version None)
Quarter: 2011Q1

REPORT INFORMATION
  Report Type: 
  Country: None (occurrence: None)
  Receive Date: 20110324
  Receipt Date: 20110316
  Transmission Date: 20110831
  Serious: Yes (Other)
  Sender: FDA-Public Use
  Company Number: SG-ASTRAZENECA-2011SE15640

PATIENT

DRUGS (1)
  1. MARCAINE [Suspect]
     Route: 037

REACTIONS (1)
  - DRUG EFFECT DECREASED [None]
